FAERS Safety Report 14599109 (Version 2)
Quarter: 2018Q3

REPORT INFORMATION
  Report Type: Report from Study
  Country: CA (occurrence: CA)
  Receive Date: 20180305
  Receipt Date: 20180816
  Transmission Date: 20181010
  Serious: No
  Sender: FDA-Public Use
  Company Number: CA-TAKEDA-2017TUS026267

PATIENT
  Age: 73 Year
  Sex: Female

DRUGS (1)
  1. PONATINIB [Suspect]
     Active Substance: PONATINIB
     Indication: CHRONIC MYELOID LEUKAEMIA
     Dosage: 15 MG, QD
     Route: 048
     Dates: start: 20171023

REACTIONS (11)
  - Red blood cell count decreased [Unknown]
  - Blood count abnormal [Unknown]
  - Dizziness [Unknown]
  - Fatigue [Unknown]
  - Lip dry [Not Recovered/Not Resolved]
  - Dry mouth [Unknown]
  - Dry skin [Unknown]
  - Angina pectoris [Unknown]
  - Hypoaesthesia [Unknown]
  - Dyspnoea [Unknown]
  - Drug prescribing error [Unknown]

NARRATIVE: CASE EVENT DATE: 20171119
